FAERS Safety Report 16436937 (Version 5)
Quarter: 2019Q3

REPORT INFORMATION
  Report Type: Report from Study
  Country: US (occurrence: US)
  Receive Date: 20190614
  Receipt Date: 20190920
  Transmission Date: 20191004
  Serious: Yes (Hospitalization)
  Sender: FDA-Public Use
  Company Number: US-ACTELION-A-NJ2019-191101

PATIENT
  Age: 11 Month
  Sex: Male

DRUGS (11)
  1. REVATIO [Concomitant]
     Active Substance: SILDENAFIL CITRATE
     Dosage: 10 MG, TID
  2. FLOVENT [Concomitant]
     Active Substance: FLUTICASONE PROPIONATE
     Dosage: 2 PUFFS, BID
  3. DIURIL [Concomitant]
     Active Substance: CHLOROTHIAZIDE
     Dosage: 50 MG, BID G-TUBE
  4. TRACLEER [Suspect]
     Active Substance: BOSENTAN
     Dosage: 16 MG, BID GTUBE
     Route: 049
     Dates: start: 20181205
  5. SILDENAFIL. [Concomitant]
     Active Substance: SILDENAFIL
     Dosage: 10 MG, TID  G-TUBE
  6. ATROVENT [Concomitant]
     Active Substance: IPRATROPIUM BROMIDE
     Dosage: 2 PUFFS, BID
  7. TRACLEER [Suspect]
     Active Substance: BOSENTAN
     Indication: PULMONARY HYPERTENSION
     Dosage: 16 MG, BID GTUBE
     Route: 049
     Dates: start: 20181105
  8. ARNIL [Concomitant]
     Dosage: 50 MG, QD
  9. ZANTAC [Concomitant]
     Active Substance: RANITIDINE HYDROCHLORIDE
     Dosage: 35 MG, BID G-TUBE
  10. ZANTAC [Concomitant]
     Active Substance: RANITIDINE HYDROCHLORIDE
     Dosage: 3 MG, BID
  11. SIMETHICONE (DIMETHICONE) [Concomitant]
     Active Substance: DIMETHICONE

REACTIONS (4)
  - Viral infection [Recovered/Resolved]
  - Hypoxia [Recovered/Resolved]
  - Hospitalisation [Not Recovered/Not Resolved]
  - Upper respiratory tract infection [Recovered/Resolved]

NARRATIVE: CASE EVENT DATE: 20190515
